FAERS Safety Report 5168183-6 (Version None)
Quarter: 2006Q4

REPORT INFORMATION
  Report Type: 
  Country: None (occurrence: None)
  Receive Date: 20061208
  Receipt Date: 20060922
  Transmission Date: 20070319
  Serious: Yes (Other)
  Sender: FDA-Public Use
  Company Number: US-BAYER-200615701BWH

PATIENT
  Age: 89 Year
  Sex: Female

DRUGS (8)
  1. AVELOX [Suspect]
     Indication: INTRA-OCULAR INJECTION
     Route: 048
     Dates: start: 20050922, end: 20050924
  2. AVASTIN [Suspect]
     Dates: start: 20050923, end: 20050923
  3. ZYMAR OPHTHALMIC SOLUTION [Suspect]
     Route: 047
     Dates: start: 20060901, end: 20060901
  4. MACUGEN [Concomitant]
     Dates: start: 20050304, end: 20050304
  5. MACUGEN [Concomitant]
     Dates: start: 20050426, end: 20050426
  6. MACUGEN [Concomitant]
     Dates: start: 20050607, end: 20050607
  7. TEQUIN [Concomitant]
     Dates: start: 20050425, end: 20050427
  8. TEQUIN [Concomitant]
     Dates: start: 20050606, end: 20050608

REACTIONS (3)
  - BLISTER [None]
  - ORAL MUCOSAL BLISTERING [None]
  - SWOLLEN TONGUE [None]
